FAERS Safety Report 16426532 (Version 1)
Quarter: 2019Q2

REPORT INFORMATION
  Report Type: Spontaneous
  Country: CA (occurrence: CA)
  Receive Date: 20190613
  Receipt Date: 20190613
  Transmission Date: 20190711
  Serious: Yes (Other)
  Sender: FDA-Public Use
  Company Number: CA-TEVA-2019-CA-1062713

PATIENT
  Age: 24 Year
  Sex: Male

DRUGS (1)
  1. ACT DEXTROAMPHETAMINE SR [Suspect]
     Active Substance: DEXTROAMPHETAMINE SULFATE
     Indication: ATTENTION DEFICIT/HYPERACTIVITY DISORDER
     Dosage: 20 MILLIGRAM DAILY;
     Route: 048

REACTIONS (2)
  - Feeling abnormal [Recovering/Resolving]
  - Product substitution issue [Recovering/Resolving]
